FAERS Safety Report 23347689 (Version 2)
Quarter: 2024Q1

REPORT INFORMATION
  Report Type: Spontaneous
  Country: PL (occurrence: PL)
  Receive Date: 20231228
  Receipt Date: 20240214
  Transmission Date: 20240410
  Serious: Yes (Hospitalization, Other)
  Sender: FDA-Public Use
  Company Number: PL-AMGEN-POLSP2023221958

PATIENT
  Age: 68 Year
  Sex: Female

DRUGS (3)
  1. DEXAMETHASONE [Suspect]
     Active Substance: DEXAMETHASONE
     Indication: Plasma cell myeloma
     Dosage: UNK
     Route: 065
     Dates: start: 20220117
  2. KYPROLIS [Suspect]
     Active Substance: CARFILZOMIB
     Indication: Off label use
     Dosage: UNK
     Route: 065
     Dates: start: 20220117
  3. KYPROLIS [Suspect]
     Active Substance: CARFILZOMIB
     Indication: Plasma cell myeloma

REACTIONS (7)
  - Abdominal hernia [Unknown]
  - Mitral valve incompetence [Unknown]
  - Uterine leiomyoma [Unknown]
  - Tricuspid valve incompetence [Unknown]
  - Rheumatoid arthritis [Unknown]
  - Scar [Unknown]
  - Off label use [Unknown]

NARRATIVE: CASE EVENT DATE: 20220117
